FAERS Safety Report 5012714-3 (Version None)
Quarter: 2006Q2

REPORT INFORMATION
  Report Type: 
  Country: None (occurrence: None)
  Receive Date: 20060524
  Receipt Date: 20060511
  Transmission Date: 20061013
  Serious: Yes (Death, Life-Threatening, Hospitalization)
  Sender: FDA-Public Use
  Company Number: 2006022618

PATIENT
  Age: 74 Year
  Sex: Male
  Weight: 38 kg

DRUGS (17)
  1. VFEND [Suspect]
     Indication: BRONCHOPULMONARY ASPERGILLOSIS
     Dosage: INTRAVENOUS
     Route: 042
     Dates: start: 20060209, end: 20060212
  2. MAXIPIME [Concomitant]
  3. ADONA (CARBAZOCHROME SODIUM SULFONATE) [Concomitant]
  4. TRANSAMIN (TRANEXAMIC ACID) [Concomitant]
  5. PRAVASTATIN SODIUM [Concomitant]
  6. ISOSORBIDE MONONITRATE [Concomitant]
  7. DILTIAZEM HYDROCHLORIDE [Concomitant]
  8. SIGMART (NICORANDIL) [Concomitant]
  9. QVAR (BECLOMETASONE DIPROPIONATE) [Concomitant]
  10. SPIRIVA [Concomitant]
  11. YODEL (SENNA) [Concomitant]
  12. SEREVENT [Concomitant]
  13. ASPIRIN [Concomitant]
  14. CODEINE PHOSPHATE [Concomitant]
  15. UNASYN [Concomitant]
  16. UNASYN ORAL [Concomitant]
  17. MEBALOTIN (PRAVASTATIN SODIUM) (PRAVASTATIN SODIUM) [Concomitant]

REACTIONS (5)
  - ABASIA [None]
  - INTERSTITIAL LUNG DISEASE [None]
  - MYCOPLASMA INFECTION [None]
  - PO2 DECREASED [None]
  - RESPIRATORY FAILURE [None]
